FAERS Safety Report 18636411 (Version 1)
Quarter: 2020Q4

REPORT INFORMATION
  Report Type: Report from Study
  Country: FR (occurrence: FR)
  Receive Date: 20201218
  Receipt Date: 20201218
  Transmission Date: 20210114
  Serious: Yes (Hospitalization)
  Sender: FDA-Public Use
  Company Number: FR-WORLDWIDE CLINICAL TRIALS-2020-FR-000730

PATIENT
  Age: 41 Year
  Sex: Male
  Weight: 62 kg

DRUGS (4)
  1. TRIFLUCAN [Concomitant]
     Active Substance: FLUCONAZOLE
     Indication: CANDIDA INFECTION
     Dosage: 400 MILLIGRAM DAILY
     Route: 048
  2. INEXIUM [ESOMEPRAZOLE SODIUM] [Concomitant]
     Active Substance: ESOMEPRAZOLE SODIUM
     Indication: GASTROOESOPHAGEAL REFLUX DISEASE
     Dosage: 20 MILLIGRAM, DAILY
     Route: 048
  3. SUNITINIB [Suspect]
     Active Substance: SUNITINIB
     Indication: GASTROINTESTINAL STROMAL TUMOUR
     Dosage: 50 MILLIGRAM, QD
     Route: 048
     Dates: start: 20201001, end: 20201209
  4. ACTISKENAN [Concomitant]
     Active Substance: MORPHINE SULFATE
     Indication: PAIN
     Dosage: 5 MILLIGRAM DAILY
     Route: 048
     Dates: start: 20201001

REACTIONS (1)
  - Subileus [Recovering/Resolving]

NARRATIVE: CASE EVENT DATE: 20201210
